FAERS Safety Report 16761536 (Version 1)
Quarter: 2019Q3

REPORT INFORMATION
  Report Type: Spontaneous
  Country: US (occurrence: US)
  Receive Date: 20190830
  Receipt Date: 20190830
  Transmission Date: 20191005
  Serious: Yes (Hospitalization)
  Sender: FDA-Public Use
  Company Number: PHHY2019US201827

PATIENT
  Age: 30 Year
  Sex: Female

DRUGS (2)
  1. AMITRIPTYLINE [Suspect]
     Active Substance: AMITRIPTYLINE
     Indication: PRODUCT USED FOR UNKNOWN INDICATION
     Route: 048
  2. CYCLOBENZAPRINE. [Suspect]
     Active Substance: CYCLOBENZAPRINE
     Indication: PRODUCT USED FOR UNKNOWN INDICATION
     Route: 065

REACTIONS (11)
  - Seizure [Recovered/Resolved]
  - Loss of consciousness [Unknown]
  - Status epilepticus [Unknown]
  - Arrhythmia [Recovered/Resolved]
  - Suicide attempt [Unknown]
  - Ventricular tachycardia [Unknown]
  - Intentional overdose [Unknown]
  - Tachycardia [Unknown]
  - Hypotension [Unknown]
  - Bradycardia [Unknown]
  - Electrocardiogram QRS complex prolonged [Recovered/Resolved]
